FAERS Safety Report 8284768 (Version 2)
Quarter: 2013Q2

REPORT INFORMATION
  Report Type: Spontaneous
  Country: US (occurrence: US)
  Receive Date: 20111212
  Receipt Date: 20130610
  Transmission Date: 20140414
  Serious: Yes (Life-Threatening, Hospitalization, Other)
  Sender: FDA-Public Use
  Company Number: US-B.I. PHARMACEUTICALS,INC./RIDGEFIELD-2011-BP-27540BP

PATIENT
  Age: 79 Year
  Sex: Male

DRUGS (5)
  1. PRADAXA [Suspect]
     Indication: ATRIAL FIBRILLATION
     Dosage: 150 MG
     Route: 048
     Dates: start: 20111115
  2. AMLODIPINE [Concomitant]
     Dosage: 10 MG
  3. FLECAINIDE [Concomitant]
     Dosage: 10 MG
  4. OMEPRAZOLE [Concomitant]
     Dosage: 20 MG
  5. COMBIVENT INHALER [Concomitant]

REACTIONS (3)
  - Cerebral haemorrhage [Recovered/Resolved]
  - Subarachnoid haemorrhage [Recovered/Resolved]
  - Creatinine renal clearance decreased [Unknown]
